FAERS Safety Report 9766493 (Version 1)
Quarter: 2013Q4

REPORT INFORMATION
  Report Type: Spontaneous
  Country: US (occurrence: US)
  Receive Date: 20131217
  Receipt Date: 20131217
  Transmission Date: 20140711
  Serious: Yes (Hospitalization)
  Sender: FDA-Public Use
  Company Number: US-BIOGENIDEC-2013BI118074

PATIENT
  Age: 75 Year
  Sex: Female

DRUGS (7)
  1. TECFIDERA [Suspect]
     Indication: MULTIPLE SCLEROSIS
     Dates: start: 20131015, end: 20131118
  2. TECFIDERA [Suspect]
     Indication: MULTIPLE SCLEROSIS
     Route: 048
     Dates: start: 20131205
  3. VAGIFEM [Concomitant]
  4. LEVOTHYROXINE [Concomitant]
  5. BABY ASPIRIN [Concomitant]
  6. EVISTA [Concomitant]
  7. VITAMIN D [Concomitant]

REACTIONS (2)
  - Multiple sclerosis relapse [Not Recovered/Not Resolved]
  - Underdose [Recovered/Resolved]
